FAERS Safety Report 7090106-3 (Version None)
Quarter: 2010Q4

REPORT INFORMATION
  Report Type: 
  Country: None (occurrence: None)
  Receive Date: 20101105
  Receipt Date: 20101105
  Transmission Date: 20110411
  Serious: Yes (Other)
  Sender: FDA-Public Use
  Company Number: None

PATIENT
  Age: 85 Year
  Sex: Male
  Weight: 104.3273 kg

DRUGS (1)
  1. LEVAQUIN [Suspect]
     Indication: TOOTH INFECTION
     Dosage: 1 PER DAY FOR 10 DAYS
     Dates: start: 20101011, end: 20101020

REACTIONS (3)
  - AGEUSIA [None]
  - DYSGEUSIA [None]
  - TONGUE DISCOLOURATION [None]
